FAERS Safety Report 5379376-7 (Version None)
Quarter: 2007Q3

REPORT INFORMATION
  Report Type: 
  Country: None (occurrence: None)
  Receive Date: 20070702
  Receipt Date: 20070619
  Transmission Date: 20080115
  Serious: No
  Sender: FDA-Public Use
  Company Number: SPV1-2007-01533

PATIENT
  Age: 40 Year
  Sex: Female

DRUGS (5)
  1. CARBATROL [Suspect]
     Indication: EPILEPSY
     Dosage: 300 MG, 2X/DAY;BID
     Dates: start: 20000101
  2. DILANTIN [Suspect]
     Indication: CONVULSION
  3. VITAMIN D /00107901/ (ERGOCALCIFEROL) [Concomitant]
  4. CALCIUM (CALCIUM) [Concomitant]
  5. MULTIVITAMIN /00831701/ (VITAMINS NOS) [Concomitant]

REACTIONS (10)
  - DENTAL CARIES [None]
  - EXCORIATION [None]
  - FALL [None]
  - GINGIVAL HYPERPLASIA [None]
  - JOINT SPRAIN [None]
  - ORAL INTAKE REDUCED [None]
  - TOOTH EROSION [None]
  - TOOTH FRACTURE [None]
  - TOOTH INFECTION [None]
  - TOOTH LOSS [None]
